FAERS Safety Report 8124382-2 (Version None)
Quarter: 2012Q1

REPORT INFORMATION
  Report Type: 
  Country: None (occurrence: None)
  Receive Date: 20120209
  Receipt Date: 20120201
  Transmission Date: 20120608
  Serious: Yes (Hospitalization)
  Sender: FDA-Public Use
  Company Number: US-BAYER-2011-112965

PATIENT
  Age: 31 Year
  Sex: Female
  Weight: 46.712 kg

DRUGS (5)
  1. YAZ [Suspect]
     Indication: CONTRACEPTION
     Dosage: UNK
     Dates: start: 20080501, end: 20081101
  2. YAZ [Suspect]
     Indication: ACNE
     Dosage: UNK
     Dates: start: 20090101, end: 20090701
  3. YAZ [Suspect]
     Dosage: UNK
     Dates: start: 20100201, end: 20100801
  4. IBUPROFEN (ADVIL) [Concomitant]
  5. HYDROCODONE BITARTRATE [Concomitant]
     Dosage: UNK
     Dates: start: 20100801

REACTIONS (8)
  - CHOLECYSTITIS CHRONIC [None]
  - ABDOMINAL PAIN [None]
  - ALOPECIA [None]
  - VOMITING [None]
  - MENTAL DISORDER [None]
  - GALLBLADDER INJURY [None]
  - SCAR [None]
  - NAUSEA [None]
